FAERS Safety Report 10253177 (Version 2)
Quarter: 2014Q3

REPORT INFORMATION
  Report Type: Report from Study
  Country: US (occurrence: US)
  Receive Date: 20140623
  Receipt Date: 20140824
  Transmission Date: 20150326
  Serious: Yes (Death, Life-Threatening, Hospitalization)
  Sender: FDA-Public Use
  Company Number: US-BRISTOL-MYERS SQUIBB COMPANY-20992319

PATIENT
  Age: 27 Year
  Sex: Female

DRUGS (18)
  1. CYCLOPHOSPHAMIDE. [Suspect]
     Active Substance: CYCLOPHOSPHAMIDE
     Indication: ACUTE LYMPHOCYTIC LEUKAEMIA
     Dosage: 03/15/2014 TO 03/15/2014?03/16/2014 TO 03/16/2014?ON DAY 1-3
     Route: 042
     Dates: start: 20140314, end: 20140314
  2. METHOTREXATE [Suspect]
     Active Substance: METHOTREXATE
     Indication: ACUTE LYMPHOCYTIC LEUKAEMIA
     Dosage: ON DAY 4
     Route: 037
     Dates: start: 20140317, end: 20140317
  3. LACTULOSE. [Concomitant]
     Active Substance: LACTULOSE
  4. VINCRISTINE [Suspect]
     Active Substance: VINCRISTINE
     Indication: ACUTE LYMPHOCYTIC LEUKAEMIA
     Dosage: ON DAY 2
     Route: 042
     Dates: start: 20140315, end: 20140315
  5. ACYCLOVIR. [Concomitant]
     Active Substance: ACYCLOVIR
  6. SENNA [Concomitant]
     Active Substance: SENNA LEAF\SENNOSIDES\SENNOSIDES A AND B
  7. HYDRALAZINE [Concomitant]
     Active Substance: HYDRALAZINE HYDROCHLORIDE
  8. PEGFILGRASTIM [Suspect]
     Active Substance: PEGFILGRASTIM
     Indication: ACUTE LYMPHOCYTIC LEUKAEMIA
     Dosage: ON DAY 5
     Route: 058
     Dates: start: 20140318, end: 20140318
  9. CEFEPIME HCL [Concomitant]
     Active Substance: CEFEPIME HYDROCHLORIDE
  10. HYDROMORPHONE [Concomitant]
     Active Substance: HYDROMORPHONE
  11. NALOXONE [Concomitant]
     Active Substance: NALOXONE
  12. LINEZOLID. [Concomitant]
     Active Substance: LINEZOLID
  13. METRONIDAZOLE. [Concomitant]
     Active Substance: METRONIDAZOLE
  14. MESNA. [Suspect]
     Active Substance: MESNA
     Indication: ACUTE LYMPHOCYTIC LEUKAEMIA
     Dosage: 03/15/2014 TO 03/15/2014?03/16/2014 TO 03/16/2014?300MG/M2?DAYS 1-3
     Route: 042
     Dates: start: 20140214, end: 20140314
  15. ESTRADIOL. [Concomitant]
     Active Substance: ESTRADIOL
  16. DEXAMETHASONE. [Suspect]
     Active Substance: DEXAMETHASONE
     Indication: ACUTE LYMPHOCYTIC LEUKAEMIA
     Dosage: 03/15/2014 TO 03/15/2014?03/16/2014 TO 03/16/2014?13/17TO 03/17-2014?LAST DOSE: 24-MAR-2014
     Route: 042
     Dates: start: 20140314
  17. HYDROCORTISONE. [Concomitant]
     Active Substance: HYDROCORTISONE
  18. PANTOPRAZOLE [Concomitant]
     Active Substance: PANTOPRAZOLE SODIUM

REACTIONS (1)
  - Venoocclusive liver disease [Fatal]

NARRATIVE: CASE EVENT DATE: 20140331
